FAERS Safety Report 6931485-4 (Version None)
Quarter: 2010Q3

REPORT INFORMATION
  Report Type: 
  Country: None (occurrence: None)
  Receive Date: 20100819
  Receipt Date: 20100813
  Transmission Date: 20110219
  Serious: Yes (Other)
  Sender: FDA-Public Use
  Company Number: US-ELI_LILLY_AND_COMPANY-US201008003882

PATIENT
  Age: 54 Year
  Sex: Female
  Weight: 77.098 kg

DRUGS (2)
  1. BYETTA [Suspect]
     Indication: TYPE 1 DIABETES MELLITUS
     Dosage: 10 UG, 2/D
     Route: 058
  2. HUMULIN /00646001/ [Concomitant]
     Indication: TYPE 1 DIABETES MELLITUS

REACTIONS (6)
  - BLINDNESS UNILATERAL [None]
  - BLOOD GLUCOSE INCREASED [None]
  - DRUG INEFFECTIVE [None]
  - OFF LABEL USE [None]
  - RETINOPATHY [None]
  - VISUAL ACUITY REDUCED [None]
